FAERS Safety Report 9045330 (Version 1)
Quarter: 2013Q1

REPORT INFORMATION
  Report Type: Spontaneous
  Country: AU (occurrence: AU)
  Receive Date: 20130131
  Receipt Date: 20130131
  Transmission Date: 20140127
  Serious: Yes (Other)
  Sender: FDA-Public Use
  Company Number: PHHY2013AU007068

PATIENT
  Sex: 0

DRUGS (1)
  1. TRAMADOL [Suspect]
     Dosage: 20 DF, UNK

REACTIONS (5)
  - Suicidal ideation [Unknown]
  - Hypoglycaemia [Recovering/Resolving]
  - Convulsion [Unknown]
  - Depressed level of consciousness [Recovering/Resolving]
  - Toxicity to various agents [Unknown]
